FAERS Safety Report 24580726 (Version 4)
Quarter: 2024Q4

REPORT INFORMATION
  Report Type: Spontaneous
  Country: US (occurrence: US)
  Receive Date: 20241105
  Receipt Date: 20241226
  Transmission Date: 20250114
  Serious: Yes (Other)
  Sender: PFIZER
  Company Number: US-PFIZER INC-PV202400141194

PATIENT
  Age: 30 Year
  Sex: Female
  Weight: 62.6 kg

DRUGS (1)
  1. DEPO-PROVERA [Suspect]
     Active Substance: MEDROXYPROGESTERONE ACETATE
     Indication: Contraception
     Dosage: UNK
     Route: 030
     Dates: start: 2022

REACTIONS (2)
  - Meningioma [Unknown]
  - Olfactory groove meningioma [Unknown]

NARRATIVE: CASE EVENT DATE: 20221021
